FAERS Safety Report 4336850-X (Version None)
Quarter: 2004Q2

REPORT INFORMATION
  Report Type: 
  Country: None (occurrence: None)
  Receive Date: 20040407
  Receipt Date: 20040326
  Transmission Date: 20050107
  Serious: Yes (Other)
  Sender: FDA-Public Use
  Company Number: US-JNJFOC-20040306354

PATIENT
  Age: 49 Year
  Sex: Female
  Weight: 84.8226 kg

DRUGS (11)
  1. REMICADE [Suspect]
     Indication: CROHN'S DISEASE
     Dosage: 3 IN, INTRAVENOUS
     Route: 042
     Dates: end: 20010101
  2. CREON 20 (PANCREATIN) [Concomitant]
  3. ASACOL (MESALAZINE) TABLETS [Concomitant]
  4. FLAGYL [Concomitant]
  5. ESTRATEST [Concomitant]
  6. ULTRAM [Concomitant]
  7. XANAX [Concomitant]
  8. LEXAPRO (ALL OTHER THERAPEUTIC PRODUCTS) [Concomitant]
  9. LEVOXYL [Concomitant]
  10. NEXIUM [Concomitant]
  11. TRAZODONE HCL [Concomitant]

REACTIONS (3)
  - BONE LESION [None]
  - GROIN PAIN [None]
  - NUCLEAR MAGNETIC RESONANCE IMAGING ABNORMAL [None]
